FAERS Safety Report 7491599-X (Version None)
Quarter: 2011Q2

REPORT INFORMATION
  Report Type: 
  Country: None (occurrence: None)
  Receive Date: 20110519
  Receipt Date: 20110509
  Transmission Date: 20111010
  Serious: Yes (Other)
  Sender: FDA-Public Use
  Company Number: US-JNJFOC-20110505225

PATIENT

DRUGS (2)
  1. CORTICOSTEROID [Concomitant]
  2. PREZISTA [Suspect]
     Indication: HIV INFECTION
     Route: 065

REACTIONS (1)
  - CUSHING'S SYNDROME [None]
